FAERS Safety Report 10170788 (Version 1)
Quarter: 2014Q2

REPORT INFORMATION
  Report Type: Spontaneous
  Country: NL (occurrence: NL)
  Receive Date: 20140514
  Receipt Date: 20140514
  Transmission Date: 20141212
  Serious: Yes (Other)
  Sender: FDA-Public Use
  Company Number: NL-PFIZER INC-2014128651

PATIENT
  Age: 77 Year
  Sex: Male

DRUGS (10)
  1. LYRICA [Suspect]
     Indication: NEURALGIA
     Dosage: 75 MG, 2X/DAY
     Dates: start: 20120821, end: 201312
  2. LISINOPRIL [Concomitant]
     Dosage: 20 MG, 1X/DAY
     Dates: start: 1996
  3. ATORVASTATIN CALCIUM [Concomitant]
     Dosage: 20 MG, 1X/DAY
     Dates: start: 1997
  4. ESOMEPRAZOLE [Concomitant]
     Dosage: 20 MG, 1X/DAY
     Dates: start: 2002
  5. VERAPAMIL [Concomitant]
     Dosage: 240 MG, 1X/DAY
     Dates: start: 1997
  6. FUROSEMIDE [Concomitant]
     Dosage: 40 MG, 1X/DAY
     Dates: start: 201202
  7. LANOXIN [Concomitant]
     Dosage: 0.0625 MG, 1X/DAY
  8. GLICLAZIDE [Concomitant]
     Dosage: 80 MG, 1X/DAY
     Dates: start: 2011
  9. NASONEX [Concomitant]
     Dosage: 100 UG, 1X/DAY
     Dates: start: 2011
  10. VENTOLIN [Concomitant]
     Dosage: UNK
     Dates: start: 201202

REACTIONS (6)
  - Personality change [Recovered/Resolved with Sequelae]
  - Mood swings [Recovered/Resolved with Sequelae]
  - Depression [Recovered/Resolved with Sequelae]
  - Suicidal ideation [Recovered/Resolved with Sequelae]
  - Hypersexuality [Recovered/Resolved with Sequelae]
  - Aggression [Recovered/Resolved with Sequelae]
